FAERS Safety Report 26106035 (Version 1)
Quarter: 2025Q4

REPORT INFORMATION
  Report Type: Spontaneous
  Country: JP (occurrence: JP)
  Receive Date: 20251201
  Receipt Date: 20251201
  Transmission Date: 20260118
  Serious: Yes (Death)
  Sender: MERCK SHARP & DOHME LLC
  Company Number: JP-009507513-2355573

PATIENT
  Age: 9 Decade
  Sex: Male

DRUGS (9)
  1. STROMECTOL [Suspect]
     Active Substance: IVERMECTIN
     Indication: Scabies
     Route: 048
     Dates: start: 20240827, end: 20240827
  2. STROMECTOL [Suspect]
     Active Substance: IVERMECTIN
     Indication: Scabies
     Route: 048
     Dates: start: 20240907, end: 20240907
  3. STROMECTOL [Suspect]
     Active Substance: IVERMECTIN
     Indication: Scabies
     Route: 048
     Dates: start: 20250129, end: 20250129
  4. STROMECTOL [Suspect]
     Active Substance: IVERMECTIN
     Indication: Scabies
     Route: 048
     Dates: start: 20250205, end: 20250205
  5. STROMECTOL [Suspect]
     Active Substance: IVERMECTIN
     Indication: Scabies
     Route: 048
     Dates: start: 20250409, end: 20250409
  6. STROMECTOL [Suspect]
     Active Substance: IVERMECTIN
     Indication: Scabies
     Route: 048
     Dates: start: 20250416, end: 20250416
  7. STROMECTOL [Suspect]
     Active Substance: IVERMECTIN
     Indication: Scabies
     Route: 048
     Dates: start: 20250822, end: 20250822
  8. STROMECTOL [Suspect]
     Active Substance: IVERMECTIN
     Indication: Scabies
     Route: 048
     Dates: start: 20250829, end: 20250829
  9. STROMECTOL [Suspect]
     Active Substance: IVERMECTIN
     Indication: Scabies
     Route: 048
     Dates: start: 20250925, end: 20250925

REACTIONS (1)
  - Cardiac failure congestive [Fatal]
